FAERS Safety Report 19236619 (Version 1)
Quarter: 2021Q2

REPORT INFORMATION
  Report Type: Spontaneous
  Country: US (occurrence: US)
  Receive Date: 20210510
  Receipt Date: 20210510
  Transmission Date: 20210717
  Serious: No
  Sender: FDA-Public Use
  Company Number: US-APOTEX-2021AP010021

PATIENT
  Sex: Female

DRUGS (1)
  1. CALCITONIN SALMON (SYNTHETIC ORIGIN) NASAL SPRAY [Suspect]
     Active Substance: CALCITONIN SALMON
     Indication: PRODUCT USED FOR UNKNOWN INDICATION
     Dosage: 1 DOSAGE FORM, QD (1 SPRAY IN EACH NOSTRIL EVERYDAY)
     Route: 045

REACTIONS (2)
  - Product storage error [Unknown]
  - Hypersensitivity [Unknown]
